FAERS Safety Report 12921856 (Version 3)
Quarter: 2016Q4

REPORT INFORMATION
  Report Type: Spontaneous
  Country: BR (occurrence: BR)
  Receive Date: 20161108
  Receipt Date: 20161230
  Transmission Date: 20170207
  Serious: Yes (Death, Life-Threatening, Hospitalization, Other)
  Sender: FDA-Public Use
  Company Number: BR-ALEXION-A201608513

PATIENT
  Age: 0 Year
  Sex: Male

DRUGS (3)
  1. SOLIRIS [Suspect]
     Active Substance: ECULIZUMAB
     Indication: HAEMOLYTIC URAEMIC SYNDROME
     Dosage: 300 MG, QW
     Route: 042
     Dates: start: 20161027
  2. SOLIRIS [Suspect]
     Active Substance: ECULIZUMAB
     Dosage: 150 MG, EVERY 4 WEEKS
     Route: 042
     Dates: start: 20161110
  3. FENTANIL [Concomitant]
     Active Substance: FENTANYL
     Indication: PAIN
     Route: 065

REACTIONS (17)
  - Pain [Unknown]
  - Poor peripheral circulation [Not Recovered/Not Resolved]
  - Anuria [Not Recovered/Not Resolved]
  - Respiratory disorder [Unknown]
  - Peritonitis [Unknown]
  - Gastric disorder [Unknown]
  - Inappropriate schedule of drug administration [Not Recovered/Not Resolved]
  - Ill-defined disorder [Unknown]
  - Cardio-respiratory arrest [Fatal]
  - Bradycardia [Unknown]
  - Swelling [Unknown]
  - Renal function test abnormal [Unknown]
  - Platelet count decreased [Not Recovered/Not Resolved]
  - Oedema [Not Recovered/Not Resolved]
  - Mouth haemorrhage [Unknown]
  - Incorrect dose administered [Not Recovered/Not Resolved]
  - Respiratory distress [Not Recovered/Not Resolved]

NARRATIVE: CASE EVENT DATE: 2016
